FAERS Safety Report 6226840-4 (Version None)
Quarter: 2009Q2

REPORT INFORMATION
  Report Type: 
  Country: None (occurrence: None)
  Receive Date: 20090612
  Receipt Date: 20090521
  Transmission Date: 20091009
  Serious: No
  Sender: FDA-Public Use
  Company Number: US-ABBOTT-09P-163-0575111-00

PATIENT
  Sex: Female
  Weight: 65.83 kg

DRUGS (13)
  1. HUMIRA [Suspect]
     Indication: RHEUMATOID ARTHRITIS
     Route: 058
     Dates: start: 20090519, end: 20090519
  2. HUMIRA [Suspect]
     Dosage: HUMIRA PRE-FILLED SYRINGE
     Route: 058
     Dates: start: 20090415, end: 20090518
  3. HUMIRA [Suspect]
  4. METHOTREXATE [Concomitant]
     Indication: RHEUMATOID ARTHRITIS
     Route: 048
  5. FOLIC ACID [Concomitant]
     Indication: VITAMIN SUPPLEMENTATION
     Route: 048
  6. PREDNISONE [Concomitant]
     Indication: RHEUMATOID ARTHRITIS
     Route: 048
  7. PLAVIX [Concomitant]
     Indication: ANTICOAGULANT THERAPY
     Route: 048
  8. NEXIUM [Concomitant]
     Indication: GASTRIC DISORDER
     Route: 048
  9. METOPROLOL TARTRATE [Concomitant]
     Indication: HYPERTENSION
     Route: 047
  10. HYDROCHLOROTHIAZIDE [Concomitant]
     Indication: CARDIAC DISORDER
     Route: 048
  11. AMLODIPINE [Concomitant]
     Indication: RAYNAUD'S PHENOMENON
     Route: 048
  12. MULTI-VITAMIN [Concomitant]
     Indication: VITAMIN SUPPLEMENTATION
  13. CALCIUM + VITAMIN D [Concomitant]
     Indication: MINERAL SUPPLEMENTATION

REACTIONS (1)
  - DRUG DOSE OMISSION [None]
